FAERS Safety Report 6938280-0 (Version None)
Quarter: 2010Q3

REPORT INFORMATION
  Report Type: 
  Country: None (occurrence: None)
  Receive Date: 20100824
  Receipt Date: 20100818
  Transmission Date: 20110219
  Serious: Yes (Hospitalization)
  Sender: FDA-Public Use
  Company Number: FR-SANOFI-AVENTIS-2010SA049130

PATIENT
  Age: 61 Year
  Sex: Male

DRUGS (9)
  1. RIFATER [Suspect]
     Route: 048
     Dates: start: 20090901, end: 20091028
  2. RIFAMATE [Suspect]
     Route: 048
     Dates: start: 20091028, end: 20100525
  3. ETHAMBUTOL HYDROCHLORIDE [Suspect]
     Route: 048
     Dates: start: 20090901, end: 20091028
  4. COLCHIMAX [Suspect]
     Route: 048
     Dates: start: 20090901, end: 20100401
  5. COLCHIMAX [Suspect]
     Indication: HYPERURICAEMIA
     Route: 048
     Dates: start: 20090901, end: 20100401
  6. ALLOPURINOL [Suspect]
     Route: 048
     Dates: start: 20090901
  7. ALLOPURINOL [Suspect]
     Indication: HYPERURICAEMIA
     Route: 048
     Dates: start: 20090901
  8. NOVOMIX 30 [Suspect]
     Route: 058
     Dates: start: 20091001
  9. STAGID [Suspect]
     Route: 048
     Dates: start: 20091001

REACTIONS (3)
  - ASTHENIA [None]
  - GOODPASTURE'S SYNDROME [None]
  - RENAL FAILURE ACUTE [None]
